FAERS Safety Report 4365989-8 (Version None)
Quarter: 2004Q2

REPORT INFORMATION
  Report Type: 
  Country: None (occurrence: None)
  Receive Date: 20040521
  Receipt Date: 20040430
  Transmission Date: 20050107
  Serious: Yes (Hospitalization)
  Sender: FDA-Public Use
  Company Number: EWC040539103

PATIENT
  Sex: Male
  Weight: 3 kg

DRUGS (1)
  1. FLUOXETINE [Suspect]
     Dates: start: 20031101, end: 20040412

REACTIONS (4)
  - CARDIAC FLUTTER [None]
  - DRUG EXPOSURE DURING PREGNANCY [None]
  - NEONATAL DISORDER [None]
  - SNEEZING [None]
